FAERS Safety Report 6780124-4 (Version None)
Quarter: 2010Q2

REPORT INFORMATION
  Report Type: 
  Country: None (occurrence: None)
  Receive Date: 20100618
  Receipt Date: 20100609
  Transmission Date: 20101027
  Serious: Yes (Other)
  Sender: FDA-Public Use
  Company Number: US-ABBOTT-10P-163-0650733-00

PATIENT
  Weight: 83.99 kg

DRUGS (20)
  1. HUMIRA [Suspect]
     Indication: RHEUMATOID ARTHRITIS
     Dates: start: 20090401
  2. HUMIRA [Suspect]
     Dates: start: 20100101, end: 20100201
  3. HUMIRA [Suspect]
     Dates: start: 20100201
  4. HUMIRA [Suspect]
     Dates: start: 20100301
  5. IBUPROFEN [Concomitant]
     Indication: ARTHRALGIA
     Dosage: 2 PILLS THREE TIMES DAILY
  6. TYLENOL W/ CODEINE NO. 3 [Concomitant]
     Indication: ARTHRALGIA
  7. METFORMIN [Concomitant]
     Indication: POLYCYSTIC OVARIES
  8. ARAVA [Concomitant]
     Indication: RHEUMATOID ARTHRITIS
  9. ALDACTONE [Concomitant]
     Indication: POLYCYSTIC OVARIES
  10. HYDROXYZINE [Concomitant]
     Indication: RESTLESS LEGS SYNDROME
  11. CYCLOBENZAPRINE [Concomitant]
     Indication: MUSCLE RELAXANT THERAPY
  12. PREDNISONE [Concomitant]
     Indication: RHEUMATOID ARTHRITIS
  13. ATENOLOL [Concomitant]
     Indication: DRUG USE FOR UNKNOWN INDICATION
  14. TYLENOL [Concomitant]
     Indication: ARTHRALGIA
     Route: 048
  15. MULTI-VITAMIN [Concomitant]
     Indication: VITAMIN SUPPLEMENTATION
  16. CALCIUM WITH VITAMIN D [Concomitant]
     Indication: MINERAL SUPPLEMENTATION
  17. VITAMIN B COMPLEX CAP [Concomitant]
     Indication: VITAMIN SUPPLEMENTATION
  18. FOLIC ACID [Concomitant]
     Indication: VITAMIN SUPPLEMENTATION
  19. PEPCID [Concomitant]
     Indication: DYSPEPSIA
     Dosage: 1 PILL THREE TIMES DAILY
     Route: 048
  20. PEPCID [Concomitant]
     Indication: PROPHYLAXIS AGAINST GASTROINTESTINAL ULCER

REACTIONS (3)
  - GINGIVAL DISORDER [None]
  - ORAL INFECTION [None]
  - SKIN INFECTION [None]
